FAERS Safety Report 6386016-7 (Version None)
Quarter: 2009Q4

REPORT INFORMATION
  Report Type: 
  Country: None (occurrence: None)
  Receive Date: 20091002
  Receipt Date: 20081218
  Transmission Date: 20100525
  Serious: Yes (Other)
  Sender: FDA-Public Use
  Company Number: US-ASTRAZENECA-2008UW25759

PATIENT
  Age: 64 Year
  Sex: Female
  Weight: 156 kg

DRUGS (7)
  1. ARIMIDEX [Suspect]
     Indication: BREAST CANCER
     Route: 048
     Dates: start: 20040101
  2. THYROID TAB [Concomitant]
  3. BLOOD PRESSURE MEDICATION [Concomitant]
  4. PROSOMA [Concomitant]
  5. COQ10 [Concomitant]
  6. RED YEAST RICE [Concomitant]
  7. CALCIUM [Concomitant]

REACTIONS (5)
  - ARTHRALGIA [None]
  - ARTHRITIS [None]
  - DEPRESSION [None]
  - OSTEOARTHRITIS [None]
  - SPINAL FRACTURE [None]
